FAERS Safety Report 5984102-4 (Version None)
Quarter: 2008Q4

REPORT INFORMATION
  Report Type: 
  Country: None (occurrence: None)
  Receive Date: 20081205
  Receipt Date: 20081205
  Transmission Date: 20090506
  Serious: Yes (Life-Threatening)
  Sender: FDA-Public Use
  Company Number: None

PATIENT
  Age: 69 Year
  Sex: Male
  Weight: 119.2 kg

DRUGS (1)
  1. SIMVASTATIN [Suspect]
     Indication: HYPERLIPIDAEMIA
     Dosage: 80 MG EVERY DAY PO
     Route: 048
     Dates: start: 20080915, end: 20081014

REACTIONS (9)
  - ASTHENIA [None]
  - BLOOD CREATINE PHOSPHOKINASE INCREASED [None]
  - CHROMATURIA [None]
  - HEPATIC ENZYME INCREASED [None]
  - INCORRECT DOSE ADMINISTERED [None]
  - MYALGIA [None]
  - RENAL FAILURE ACUTE [None]
  - TREATMENT NONCOMPLIANCE [None]
  - URINE ODOUR ABNORMAL [None]
